FAERS Safety Report 23472560 (Version 2)
Quarter: 2024Q1

REPORT INFORMATION
  Report Type: Spontaneous
  Country: JP (occurrence: JP)
  Receive Date: 20240202
  Receipt Date: 20240215
  Transmission Date: 20240410
  Serious: Yes (Other)
  Sender: FDA-Public Use
  Company Number: JP-SA-2024SA030010

PATIENT
  Age: 73 Year
  Sex: Female

DRUGS (2)
  1. LIBTAYO [Suspect]
     Active Substance: CEMIPLIMAB-RWLC
     Indication: Squamous cell carcinoma of the cervix
     Route: 041
  2. FENTANYL [Concomitant]
     Active Substance: FENTANYL\FENTANYL CITRATE
     Indication: Squamous cell carcinoma of the cervix
     Route: 065

REACTIONS (4)
  - Pneumonia aspiration [Unknown]
  - Delirium [Unknown]
  - Renal impairment [Unknown]
  - Pyrexia [Unknown]
